FAERS Safety Report 9849757 (Version 1)
Quarter: 2014Q1

REPORT INFORMATION
  Report Type: Spontaneous
  Country: US (occurrence: US)
  Receive Date: 20140128
  Receipt Date: 20140128
  Transmission Date: 20141002
  Serious: No
  Sender: FDA-Public Use
  Company Number: US-PFIZER INC-2014024626

PATIENT
  Age: 65 Year
  Sex: Male
  Weight: 70.3 kg

DRUGS (1)
  1. VIAGRA [Suspect]
     Indication: ERECTILE DYSFUNCTION
     Dosage: 50 MG (BY BREAKING 100 MG IN HALF), AS NEEDED
     Route: 048

REACTIONS (1)
  - Drug ineffective [Unknown]
